FAERS Safety Report 4428166-8 (Version None)
Quarter: 2004Q3

REPORT INFORMATION
  Report Type: 
  Country: None (occurrence: None)
  Receive Date: 20040726
  Receipt Date: 20040308
  Transmission Date: 20050211
  Serious: No
  Sender: FDA-Public Use
  Company Number: USA031255258

PATIENT
  Age: 39 Year
  Sex: Female

DRUGS (3)
  1. FORTEO [Suspect]
     Indication: OSTEOPOROSIS
     Dates: start: 20031104, end: 20031201
  2. LAXATIVE [Concomitant]
  3. CORTICOSTEROID NOS [Concomitant]

REACTIONS (7)
  - CHEST PAIN [None]
  - CONSTIPATION [None]
  - MEMORY IMPAIRMENT [None]
  - NAUSEA [None]
  - OEDEMA PERIPHERAL [None]
  - SWELLING FACE [None]
  - VOMITING [None]
